FAERS Safety Report 6885415-4 (Version None)
Quarter: 2010Q3

REPORT INFORMATION
  Report Type: 
  Country: None (occurrence: None)
  Receive Date: 20100729
  Receipt Date: 20080322
  Transmission Date: 20110219
  Serious: Yes (Life-Threatening, Hospitalization, Disabling, Other)
  Sender: FDA-Public Use
  Company Number: US-PFIZER INC-2008010962

PATIENT
  Sex: Male
  Weight: 72.1 kg

DRUGS (12)
  1. CELEBREX [Suspect]
     Indication: OSTEOARTHRITIS
     Route: 048
     Dates: start: 20051130, end: 20070501
  2. CELEBREX [Suspect]
     Indication: ARTHRALGIA
  3. CELEBREX [Suspect]
     Indication: FRACTURE
  4. WELLBUTRIN [Concomitant]
     Route: 048
  5. DURAGESIC-100 [Concomitant]
     Dosage: 1 EVERY 72 HOURS
  6. LUNESTA [Concomitant]
     Route: 048
  7. PROTONIX [Concomitant]
     Route: 048
  8. CYMBALTA [Concomitant]
  9. ANDROGEL [Concomitant]
  10. LYRICA [Concomitant]
     Dosage: 1 EVERY 3 DAYS
  11. DITROPAN [Concomitant]
     Dosage: 1 EVERY 3 DAYS
  12. HYDROCODONE BITARTRATE [Concomitant]

REACTIONS (1)
  - MYOCARDIAL INFARCTION [None]
